FAERS Safety Report 10484074 (Version 1)
Quarter: 2014Q3

REPORT INFORMATION
  Report Type: Spontaneous
  Country: US (occurrence: US)
  Receive Date: 20140930
  Receipt Date: 20140930
  Transmission Date: 20150326
  Serious: Yes (Other)
  Sender: FDA-Public Use
  Company Number: US-ASTRAZENECA-2014SE72177

PATIENT
  Age: 70 Year
  Sex: Female
  Weight: 45.4 kg

DRUGS (5)
  1. ARIMIDEX [Suspect]
     Active Substance: ANASTROZOLE
     Indication: BREAST CANCER
     Route: 048
     Dates: start: 20041227, end: 200912
  2. BYSTOLIC [Concomitant]
     Active Substance: NEBIVOLOL HYDROCHLORIDE
     Indication: HYPERTENSION
  3. PRILOSEC [Suspect]
     Active Substance: OMEPRAZOLE MAGNESIUM
     Indication: ABDOMINAL DISCOMFORT
     Route: 048
  4. BUDESONIDE. [Suspect]
     Active Substance: BUDESONIDE
     Route: 048
     Dates: start: 20140912, end: 20140913
  5. NEPHROVITE [Concomitant]
     Indication: RENAL FAILURE CHRONIC
     Dosage: DAILY

REACTIONS (14)
  - Emotional distress [Unknown]
  - Nephropathy [Unknown]
  - Malabsorption [Unknown]
  - Bone disorder [Unknown]
  - Erythema [Unknown]
  - Wrong technique in drug usage process [Unknown]
  - Hypertension [Unknown]
  - Breast cancer [Unknown]
  - Spinal osteoarthritis [Unknown]
  - Pruritus [Unknown]
  - Rash generalised [Unknown]
  - Incorrect dose administered [Unknown]
  - Crohn^s disease [Unknown]
  - Off label use [Unknown]

NARRATIVE: CASE EVENT DATE: 2006
